FAERS Safety Report 7083841-4 (Version None)
Quarter: 2010Q4

REPORT INFORMATION
  Report Type: 
  Country: None (occurrence: None)
  Receive Date: 20101104
  Receipt Date: 20101029
  Transmission Date: 20110411
  Serious: Yes (Life-Threatening, Other)
  Sender: FDA-Public Use
  Company Number: GB-BRISTOL-MYERS SQUIBB COMPANY-15363567

PATIENT
  Age: 20 Year
  Sex: Female

DRUGS (1)
  1. SPRYCEL [Suspect]
     Indication: ACUTE LYMPHOCYTIC LEUKAEMIA
     Dosage: STARTED 9 MONTHS AGO

REACTIONS (3)
  - GRAFT VERSUS HOST DISEASE [None]
  - PERICARDIAL EFFUSION [None]
  - PLEURAL EFFUSION [None]
